FAERS Safety Report 16062978 (Version 1)
Quarter: 2019Q1

REPORT INFORMATION
  Report Type: Spontaneous
  Country: DE (occurrence: DE)
  Receive Date: 20190312
  Receipt Date: 20190312
  Transmission Date: 20190418
  Serious: Yes (Death, Hospitalization)
  Sender: FDA-Public Use
  Company Number: DE-PFIZER INC-2019106232

PATIENT
  Age: 86 Year
  Sex: Male

DRUGS (2)
  1. METOHEXAL [METOPROLOL SUCCINATE] [Suspect]
     Active Substance: METOPROLOL SUCCINATE
  2. METHOTREXATE SODIUM. [Suspect]
     Active Substance: METHOTREXATE SODIUM
     Dosage: 15 MG, DAILY (WEEKLY DISPENSER WITH ONE 15 MG METHOTREXATE TABLET DAILY)

REACTIONS (8)
  - Product name confusion [Fatal]
  - Pyrexia [Fatal]
  - Wrong product administered [Fatal]
  - Accidental overdose [Fatal]
  - Toxicity to various agents [Fatal]
  - Dizziness [Fatal]
  - Headache [Fatal]
  - Oral disorder [Fatal]
